FAERS Safety Report 7433174-9 (Version None)
Quarter: 2011Q2

REPORT INFORMATION
  Report Type: 
  Country: None (occurrence: None)
  Receive Date: 20110415
  Receipt Date: 20110411
  Transmission Date: 20111010
  Serious: Yes (Hospitalization)
  Sender: FDA-Public Use
  Company Number: 2011SP016299

PATIENT
  Age: 18 Year
  Sex: Female
  Weight: 49.8957 kg

DRUGS (2)
  1. IMPLANON [Suspect]
     Indication: CONTRACEPTION
     Dates: start: 20101214
  2. MIDOL EXTENDED RELIEF CAPLETS [Concomitant]

REACTIONS (2)
  - HAEMORRHAGE [None]
  - MUSCLE SPASMS [None]
